FAERS Safety Report 8013330-1 (Version None)
Quarter: 2011Q4

REPORT INFORMATION
  Report Type: 
  Country: None (occurrence: None)
  Receive Date: 20111223
  Receipt Date: 20111209
  Transmission Date: 20120403
  Serious: Yes (Hospitalization, Other)
  Sender: FDA-Public Use
  Company Number: FK201102918

PATIENT
  Age: 6 Month
  Sex: Male
  Weight: 6 kg

DRUGS (6)
  1. PENTAM [Suspect]
     Indication: PROPHYLAXIS
     Dosage: 220 , RECEIVED 10 X NORMAL DOSE (22 NORMAL), INTRAVENOUS (NOT OTHERWISE SPECIFIED)
     Route: 042
  2. ANTIBIOTICS [Concomitant]
  3. CELLCEPT [Concomitant]
  4. MYCAMINE (MICAFUNGIN SODIUM) [Concomitant]
  5. INTRAVENOUS FLUID (GLUCOSE) [Concomitant]
  6. GANCICLOVIR [Concomitant]

REACTIONS (2)
  - NO ADVERSE EVENT [None]
  - ACCIDENTAL OVERDOSE [None]
